FAERS Safety Report 12737858 (Version 2)
Quarter: 2016Q3

REPORT INFORMATION
  Report Type: Report from Study
  Country: US (occurrence: US)
  Receive Date: 20160913
  Receipt Date: 20160930
  Transmission Date: 20161109
  Serious: Yes (Other)
  Sender: FDA-Public Use
  Company Number: US-PFIZER INC-2016411528

PATIENT

DRUGS (6)
  1. CARBOPLATIN. [Suspect]
     Active Substance: CARBOPLATIN
     Indication: NON-SMALL CELL LUNG CANCER STAGE III
     Dosage: AUC 2 WEEKLY
  2. CARBOPLATIN. [Suspect]
     Active Substance: CARBOPLATIN
     Dosage: AUC 6 ON DAYS 1-7 OF EACH CYCLE)
  3. VELIPARIB [Suspect]
     Active Substance: VELIPARIB
     Indication: NON-SMALL CELL LUNG CANCER STAGE III
     Dosage: 40 MG, 2X/DAY
     Route: 048
  4. PACLITAXEL. [Suspect]
     Active Substance: PACLITAXEL
     Indication: NON-SMALL CELL LUNG CANCER STAGE III
     Dosage: 45 MG/M2, CYCLIC
  5. PACLITAXEL. [Suspect]
     Active Substance: PACLITAXEL
     Dosage: 200 MG/M2, CYCLIC (ON DAYS 1-7 OF EACH CYCLE)
  6. VELIPARIB [Suspect]
     Active Substance: VELIPARIB
     Dosage: 80 MG, CYCLIC (TWICE DAILY ON DAYS 1-7 OF EACH CYCLE)
     Route: 048

REACTIONS (2)
  - Oesophagitis [Unknown]
  - Dysphagia [Unknown]
